FAERS Safety Report 21564668 (Version 5)
Quarter: 2022Q4

REPORT INFORMATION
  Report Type: Report from Study
  Country: DE (occurrence: DE)
  Receive Date: 20221108
  Receipt Date: 20221214
  Transmission Date: 20230113
  Serious: Yes (Death, Life-Threatening, Hospitalization, Other)
  Sender: FDA-Public Use
  Company Number: DE-BRISTOL-MYERS SQUIBB COMPANY-2022-133624

PATIENT
  Age: 85 Year
  Sex: Male
  Weight: 94 kg

DRUGS (8)
  1. POMALIDOMIDE [Suspect]
     Active Substance: POMALIDOMIDE
     Indication: Plasma cell myeloma
     Dosage: CYCLICAL; DAY 1-28 OF 28 DAY CYCLE (3MG/DAY)
     Route: 048
     Dates: start: 20200819, end: 20200819
  2. POMALIDOMIDE [Suspect]
     Active Substance: POMALIDOMIDE
     Dosage: CYCLICAL; DAY 1-28 OF 28 DAY CYCLE (3MG/DAY)
     Route: 048
     Dates: start: 20221019, end: 20221029
  3. DEXAMETHASONE [Suspect]
     Active Substance: DEXAMETHASONE
     Indication: Plasma cell myeloma
     Dosage: CYCLICAL; DAY 1, 8, 15, 22 OF A 28-DAY CYCLE (10MG/DAY)
     Route: 048
     Dates: start: 20200819, end: 20200819
  4. DEXAMETHASONE [Suspect]
     Active Substance: DEXAMETHASONE
     Dosage: CYCLICAL; DAY 1, 8, 15, 22 OF A 28-DAY CYCLE (10MG/DAY)
     Route: 048
     Dates: start: 20221026, end: 20221026
  5. IXAZOMIB [Suspect]
     Active Substance: IXAZOMIB
     Indication: Plasma cell myeloma
     Dosage: CYCLICAL; DAY 1, 8, 15 OF A 28-DAY CYCLE (2.3MG/DAY)
     Route: 048
     Dates: start: 20200819, end: 20200819
  6. IXAZOMIB [Suspect]
     Active Substance: IXAZOMIB
     Dosage: CYCLICAL; DAY 1, 8, 15 OF A 28-DAY CYCLE (2.3MG/DAY)
     Route: 048
     Dates: start: 20221026, end: 20221026
  7. ACYCLOVIR [Concomitant]
     Active Substance: ACYCLOVIR
     Indication: Antiviral prophylaxis
     Dosage: 1-0-0
     Route: 048
     Dates: start: 20200817
  8. SULFAMETHOXAZOLE\TRIMETHOPRIM [Concomitant]
     Active Substance: SULFAMETHOXAZOLE\TRIMETHOPRIM
     Indication: Antibiotic prophylaxis
     Dosage: 1-0-0 (MO-WED-FRI)
     Route: 048
     Dates: start: 20200817

REACTIONS (2)
  - COVID-19 pneumonia [Fatal]
  - Superinfection bacterial [Fatal]

NARRATIVE: CASE EVENT DATE: 20221102
